FAERS Safety Report 5220755-6 (Version None)
Quarter: 2007Q1

REPORT INFORMATION
  Report Type: 
  Country: None (occurrence: None)
  Receive Date: 20070125
  Receipt Date: 20070125
  Transmission Date: 20070707
  Serious: Yes (Hospitalization)
  Sender: FDA-Public Use
  Company Number: None

PATIENT
  Sex: Female

DRUGS (7)
  1. INSULIN [Suspect]
     Indication: DIABETES MELLITUS
     Dosage: 15 UNITS IN AM 5 UNITS IN PM
  2. REGLAN [Concomitant]
  3. NORVASC [Concomitant]
  4. DIOVAN [Concomitant]
  5. AVANDIA [Concomitant]
  6. LISINOPRIL [Concomitant]
  7. COREG [Concomitant]

REACTIONS (2)
  - BLOOD GLUCOSE DECREASED [None]
  - LOSS OF CONSCIOUSNESS [None]
